FAERS Safety Report 7648103-2 (Version None)
Quarter: 2011Q3

REPORT INFORMATION
  Report Type: 
  Country: None (occurrence: None)
  Receive Date: 20110801
  Receipt Date: 20110720
  Transmission Date: 20111222
  Serious: Yes (Hospitalization)
  Sender: FDA-Public Use
  Company Number: JP-CELGENEUS-087-50794-11061135

PATIENT
  Age: 64 Year
  Sex: Male

DRUGS (9)
  1. GLAKAY [Concomitant]
     Route: 048
  2. TELEMINSOFT [Concomitant]
     Route: 065
     Dates: start: 20110520
  3. ONDASETRON [Concomitant]
     Route: 065
     Dates: start: 20110516, end: 20110519
  4. VIDAZA [Suspect]
     Dosage: 75 MILLIGRAM
     Route: 041
     Dates: start: 20110623, end: 20110629
  5. ALINAMIN-F [Concomitant]
     Route: 065
     Dates: start: 20110520, end: 20110524
  6. VIDAZA [Suspect]
     Indication: MYELODYSPLASTIC SYNDROME
     Dosage: 75 MILLIGRAM
     Route: 041
     Dates: start: 20110516, end: 20110519
  7. MAGNESIUM SULFATE [Concomitant]
     Route: 065
     Dates: start: 20110518
  8. PANTOL [Concomitant]
     Route: 065
     Dates: start: 20110520, end: 20110525
  9. PRIMOBOLAN [Concomitant]
     Route: 065
     Dates: start: 20110516, end: 20110520

REACTIONS (3)
  - ILEUS PARALYTIC [None]
  - CONSTIPATION [None]
  - DYSURIA [None]
